FAERS Safety Report 6242025-X (Version None)
Quarter: 2009Q2

REPORT INFORMATION
  Report Type: 
  Country: None (occurrence: None)
  Receive Date: 20090623
  Receipt Date: 20090610
  Transmission Date: 20091009
  Serious: Yes (Hospitalization)
  Sender: FDA-Public Use
  Company Number: PHEH2009US06000

PATIENT
  Sex: Female

DRUGS (1)
  1. DIOVAN HCT [Suspect]
     Dosage: UNK
     Route: 048
     Dates: start: 20090101

REACTIONS (2)
  - INTERVERTEBRAL DISC PROTRUSION [None]
  - LOSS OF CONTROL OF LEGS [None]
